FAERS Safety Report 4554819-7 (Version None)
Quarter: 2005Q1

REPORT INFORMATION
  Report Type: 
  Country: None (occurrence: None)
  Receive Date: 20050118
  Receipt Date: 20050107
  Transmission Date: 20050727
  Serious: Yes (Other)
  Sender: FDA-Public Use
  Company Number: FR-JNJFOC-20050102367

PATIENT
  Age: 40 Year
  Sex: Male

DRUGS (4)
  1. TRAMADOL HCL [Suspect]
     Route: 049
  2. TRAMADOL HCL [Suspect]
     Route: 049
  3. TRAMADOL HCL [Suspect]
     Route: 049
  4. TRAMADOL HCL [Suspect]
     Route: 049

REACTIONS (3)
  - ANXIETY [None]
  - DRUG DEPENDENCE [None]
  - ERECTILE DYSFUNCTION [None]
